FAERS Safety Report 7761270-5 (Version None)
Quarter: 2011Q3

REPORT INFORMATION
  Report Type: 
  Country: None (occurrence: None)
  Receive Date: 20110915
  Receipt Date: 20110830
  Transmission Date: 20111222
  Serious: Yes (Other)
  Sender: FDA-Public Use
  Company Number: 2011AP001926

PATIENT
  Age: 48 Year
  Sex: Male

DRUGS (2)
  1. SERTRALINE HYDROCHLORIDE [Suspect]
  2. CITALOPRAM HYDROBROMIDE [Suspect]

REACTIONS (5)
  - ANXIETY [None]
  - MUSCLE SPASMS [None]
  - NIGHTMARE [None]
  - DECREASED INTEREST [None]
  - LETHARGY [None]
